FAERS Safety Report 16096149 (Version 2)
Quarter: 2019Q1

REPORT INFORMATION
  Report Type: Spontaneous
  Country: IT (occurrence: IT)
  Receive Date: 20190320
  Receipt Date: 20190327
  Transmission Date: 20190418
  Serious: Yes (Other)
  Sender: FDA-Public Use
  Company Number: IT-PFIZER INC-2019118098

PATIENT
  Age: 59 Year
  Sex: Female

DRUGS (5)
  1. TRIATEC (RAMIPRIL) [Suspect]
     Active Substance: RAMIPRIL
     Indication: HYPERTENSION
     Dosage: 1 DF, DAILY
     Route: 048
     Dates: start: 20190126, end: 20190202
  2. ZETIA [Concomitant]
     Active Substance: EZETIMIBE
     Dosage: UNK
  3. SELES BETA [Suspect]
     Active Substance: ATENOLOL
     Indication: HYPERTENSION
     Dosage: 0.5 DF, DAILY
     Route: 048
     Dates: start: 20190126, end: 20190202
  4. LIPSIN [Concomitant]
     Dosage: UNK
  5. SIRDALUD [Suspect]
     Active Substance: TIZANIDINE
     Indication: BACK PAIN
     Dosage: 1 DF, DAILY
     Route: 065
     Dates: start: 20190201, end: 20190201

REACTIONS (4)
  - Hypertensive crisis [Recovering/Resolving]
  - Feeling hot [Recovering/Resolving]
  - Hot flush [Recovering/Resolving]
  - Headache [Recovering/Resolving]

NARRATIVE: CASE EVENT DATE: 20190202
